FAERS Safety Report 8401391-7 (Version None)
Quarter: 2012Q2

REPORT INFORMATION
  Report Type: 
  Country: None (occurrence: None)
  Receive Date: 20120601
  Receipt Date: 20120522
  Transmission Date: 20120825
  Serious: Yes (Hospitalization, Other)
  Sender: FDA-Public Use
  Company Number: US-JNJFOC-20120502074

PATIENT
  Sex: Female
  Weight: 77.11 kg

DRUGS (4)
  1. REMICADE [Suspect]
     Route: 042
     Dates: start: 20120501
  2. REMICADE [Suspect]
     Indication: CROHN'S DISEASE
     Route: 042
     Dates: start: 20120301
  3. REMICADE [Suspect]
     Route: 042
     Dates: start: 20120101
  4. REMICADE [Suspect]
     Route: 042

REACTIONS (11)
  - BLOOD POTASSIUM DECREASED [None]
  - ERYTHEMA [None]
  - FATIGUE [None]
  - INFUSION RELATED REACTION [None]
  - THROAT TIGHTNESS [None]
  - DECREASED APPETITE [None]
  - ARTHRALGIA [None]
  - DEHYDRATION [None]
  - BLOOD SODIUM DECREASED [None]
  - FEELING HOT [None]
  - ASTHENIA [None]
